FAERS Safety Report 8184733-X (Version None)
Quarter: 2012Q1

REPORT INFORMATION
  Report Type: 
  Country: None (occurrence: None)
  Receive Date: 20120305
  Receipt Date: 20120305
  Transmission Date: 20120608
  Serious: Yes (Hospitalization)
  Sender: FDA-Public Use
  Company Number: None

PATIENT
  Age: 56 Year
  Sex: Male

DRUGS (1)
  1. INCIVEK [Suspect]
     Indication: HEPATITIS C
     Dates: start: 20111106, end: 20120201

REACTIONS (5)
  - FEELING ABNORMAL [None]
  - TREMOR [None]
  - DRUG WITHDRAWAL SYNDROME [None]
  - RASH GENERALISED [None]
  - MUSCLE SPASMS [None]
